FAERS Safety Report 11755279 (Version 1)
Quarter: 2015Q4

REPORT INFORMATION
  Report Type: Spontaneous
  Country: ES (occurrence: ES)
  Receive Date: 20151119
  Receipt Date: 20151119
  Transmission Date: 20160304
  Serious: No
  Sender: FDA-Public Use
  Company Number: ES-ALK-ABELLO A/S-1044434

PATIENT
  Age: 47 Year
  Sex: Male

DRUGS (1)
  1. HONEY BEE VENOM [Suspect]
     Active Substance: APIS MELLIFERA VENOM
     Indication: ALLERGY TO VENOM
     Route: 058

REACTIONS (4)
  - Pruritus generalised [Recovered/Resolved]
  - Eye pruritus [Recovered/Resolved]
  - Malaise [Recovered/Resolved]
  - Restlessness [Recovered/Resolved]

NARRATIVE: CASE EVENT DATE: 20150902
